FAERS Safety Report 5341680-6 (Version None)
Quarter: 2007Q2

REPORT INFORMATION
  Report Type: 
  Country: None (occurrence: None)
  Receive Date: 20070601
  Receipt Date: 20070522
  Transmission Date: 20071010
  Serious: Yes (Hospitalization)
  Sender: FDA-Public Use
  Company Number: ESWYE977512MAR07

PATIENT
  Age: 20 Year
  Sex: Female

DRUGS (3)
  1. VANDRAL RETARD [Suspect]
     Indication: POST-TRAUMATIC STRESS DISORDER
     Route: 048
     Dates: start: 20070309, end: 20070309
  2. VANDRAL RETARD [Suspect]
     Dosage: UNKNOWN
  3. TOPAMAX [Suspect]
     Route: 048
     Dates: start: 20070309, end: 20070309

REACTIONS (4)
  - HYPOACUSIS [None]
  - INTENTIONAL OVERDOSE [None]
  - SUICIDE ATTEMPT [None]
  - TINNITUS [None]
